FAERS Safety Report 9527266 (Version 2)
Quarter: 2013Q4

REPORT INFORMATION
  Report Type: Spontaneous
  Country: GB (occurrence: GB)
  Receive Date: 20130917
  Receipt Date: 20131010
  Transmission Date: 20140711
  Serious: Yes (Other)
  Sender: FDA-Public Use
  Company Number: GB-BIOGENIDEC-2013BI076253

PATIENT
  Age: 29 Year
  Sex: Female

DRUGS (6)
  1. TYSABRI [Suspect]
     Indication: MULTIPLE SCLEROSIS
     Dates: start: 20120820, end: 20130727
  2. BRUFEN [Concomitant]
     Indication: PRODUCT USED FOR UNKNOWN INDICATION
  3. SOLIFENACIN [Concomitant]
     Indication: PRODUCT USED FOR UNKNOWN INDICATION
  4. GABAPENTIN [Concomitant]
     Indication: PRODUCT USED FOR UNKNOWN INDICATION
  5. IMIGRAN [Concomitant]
     Indication: PRODUCT USED FOR UNKNOWN INDICATION
  6. CINNARZINE [Concomitant]

REACTIONS (1)
  - Abortion spontaneous [Unknown]
